FAERS Safety Report 8133543-8 (Version None)
Quarter: 2012Q1

REPORT INFORMATION
  Report Type: 
  Country: None (occurrence: None)
  Receive Date: 20120213
  Receipt Date: 20120207
  Transmission Date: 20120608
  Serious: Yes (Life-Threatening, Hospitalization, Other)
  Sender: FDA-Public Use
  Company Number: PHHY2012DE010749

PATIENT
  Sex: Female
  Weight: 65 kg

DRUGS (10)
  1. RASILEZ HCT [Suspect]
     Indication: HYPERTENSION
     Dosage: 1 DF, QD
     Route: 048
     Dates: start: 20100614, end: 20110929
  2. OPIPRAMOL [Suspect]
     Dosage: 1 DF, QD
     Route: 048
     Dates: start: 20071108
  3. SIMVASTATIN [Suspect]
     Dosage: 1 DF, QD
     Route: 048
     Dates: start: 20080421
  4. ACETYLSALICYLIC ACID SRT [Suspect]
     Dosage: 1 DF, QD
     Route: 048
     Dates: start: 20061127
  5. LEVOTHYROXINE SODIUM [Suspect]
     Dosage: 1 DF, (75 MICG) QD
     Route: 048
     Dates: start: 20100706
  6. METOPROLOL SUCCINATE [Suspect]
     Dosage: 1 DF, BID
     Route: 048
     Dates: start: 20080204
  7. DOXAZOSIN [Suspect]
     Dosage: 1 DF, BID
     Route: 048
     Dates: start: 20110714
  8. MOXONIDINE [Suspect]
     Dosage: 1 DF, BID
     Route: 048
     Dates: start: 20070705
  9. LEVOTHYROXINE SODIUM [Suspect]
     Dosage: 1 DF, (50 MICG) QD
     Route: 048
     Dates: start: 20100706
  10. AMLODIPINE [Suspect]
     Route: 048
     Dates: start: 20110321

REACTIONS (2)
  - BLOOD PRESSURE INCREASED [None]
  - HYPERTENSION [None]
